FAERS Safety Report 4590683-8 (Version None)
Quarter: 2005Q1

REPORT INFORMATION
  Report Type: 
  Country: None (occurrence: None)
  Receive Date: 20050224
  Receipt Date: 20050215
  Transmission Date: 20050727
  Serious: Yes (Other)
  Sender: FDA-Public Use
  Company Number: JP-ABBOTT-05P-087-0291052-00

PATIENT
  Age: 55 Year
  Sex: Female

DRUGS (6)
  1. CLARITH [Suspect]
     Indication: SINUSITIS
     Route: 048
     Dates: start: 20040724, end: 20040729
  2. SERRAPEPTASE [Concomitant]
     Indication: DRUG USE FOR UNKNOWN INDICATION
     Route: 048
     Dates: start: 20040713, end: 20040720
  3. SERRAPEPTASE [Concomitant]
     Dates: start: 20040724, end: 20040729
  4. ANTIBIOTICS-RESISTANT LACTIC ACID BACTERIA [Concomitant]
     Indication: DRUG USE FOR UNKNOWN INDICATION
     Route: 048
     Dates: start: 20040720
  5. ANTIBIOTICS-RESISTANT LACTIC ACID BACTERIA [Concomitant]
     Dates: start: 20040724, end: 20040729
  6. TROXIPIDE [Concomitant]
     Indication: DRUG USE FOR UNKNOWN INDICATION
     Route: 048
     Dates: end: 20040729

REACTIONS (5)
  - HENOCH-SCHONLEIN PURPURA [None]
  - PAIN IN EXTREMITY [None]
  - PHARYNGOLARYNGEAL PAIN [None]
  - PIGMENTATION DISORDER [None]
  - PYREXIA [None]
